FAERS Safety Report 7722080-8 (Version None)
Quarter: 2011Q3

REPORT INFORMATION
  Report Type: 
  Country: None (occurrence: None)
  Receive Date: 20110831
  Receipt Date: 20110819
  Transmission Date: 20111222
  Serious: Yes (Other)
  Sender: FDA-Public Use
  Company Number: PHHY2010CA46615

PATIENT
  Sex: Female

DRUGS (3)
  1. PREDNISONE [Concomitant]
     Dosage: UNK UKN, UNK
  2. ZOLEDRONOC ACID [Suspect]
     Indication: OSTEOPOROSIS
     Dosage: UNK UKN, UNK
     Dates: start: 20090715
  3. FOSAMAX [Concomitant]
     Dosage: UNK UKN, UNK

REACTIONS (9)
  - PROCEDURAL COMPLICATION [None]
  - MYOCARDIAL INFARCTION [None]
  - JAW FRACTURE [None]
  - SPINAL FRACTURE [None]
  - OSTEONECROSIS OF JAW [None]
  - PAIN IN JAW [None]
  - ERYTHEMA [None]
  - EXPOSED BONE IN JAW [None]
  - ARTHRALGIA [None]
